FAERS Safety Report 5653233-0 (Version None)
Quarter: 2008Q1

REPORT INFORMATION
  Report Type: 
  Country: None (occurrence: None)
  Receive Date: 20080306
  Receipt Date: 20080227
  Transmission Date: 20080703
  Serious: Yes (Hospitalization, Other)
  Sender: FDA-Public Use
  Company Number: US-BAYER-200810646BCC

PATIENT
  Age: 15 Year
  Sex: Female

DRUGS (1)
  1. MIDOL [Suspect]
     Indication: MENSTRUAL DISORDER
     Route: 048
     Dates: start: 20080211

REACTIONS (2)
  - PALLOR [None]
  - VOMITING [None]
